FAERS Safety Report 23472479 (Version 1)
Quarter: 2024Q1

REPORT INFORMATION
  Report Type: Report from Study
  Country: US (occurrence: US)
  Receive Date: 20240202
  Receipt Date: 20240202
  Transmission Date: 20240410
  Serious: Yes (Other)
  Sender: FDA-Public Use
  Company Number: US-INCYTE CORPORATION-2024IN001080

PATIENT

DRUGS (1)
  1. JAKAFI [Suspect]
     Active Substance: RUXOLITINIB
     Indication: Chronic graft versus host disease
     Dosage: 10 MILLIGRAM, BID
     Route: 048
     Dates: start: 20240105

REACTIONS (6)
  - Thrombosis [Unknown]
  - Decreased appetite [Unknown]
  - Eye irritation [Unknown]
  - Post procedural complication [Unknown]
  - Vomiting [Unknown]
  - Asthenia [Unknown]
